FAERS Safety Report 16871575 (Version 4)
Quarter: 2019Q4

REPORT INFORMATION
  Report Type: Report from Study
  Country: KR (occurrence: KR)
  Receive Date: 20191001
  Receipt Date: 20191231
  Transmission Date: 20200122
  Serious: Yes (Hospitalization)
  Sender: FDA-Public Use
  Company Number: KR-CELLTRION INC.-2019KR025194

PATIENT

DRUGS (12)
  1. ASPIRIN. [Concomitant]
     Active Substance: ASPIRIN
     Indication: HYPERTENSION
     Dosage: 1 TAB DAILY
     Route: 048
  2. PERTUZUMAB. [Concomitant]
     Active Substance: PERTUZUMAB
     Indication: BREAST CANCER METASTATIC
     Dosage: 840 MG, QD
     Route: 042
     Dates: start: 20190729
  3. FEROBA YOU [Concomitant]
     Indication: ANAEMIA PROPHYLAXIS
     Dosage: 256 MG, QD
     Route: 048
  4. LASIX [Concomitant]
     Active Substance: FUROSEMIDE
     Indication: HYPERTENSION
     Dosage: 40 MG, QD
     Route: 048
  5. DOCETAXEL. [Concomitant]
     Active Substance: DOCETAXEL
     Indication: BREAST CANCER METASTATIC
     Dosage: 114 MG, QD
     Route: 042
     Dates: start: 20190729, end: 20190729
  6. CONCOR [Concomitant]
     Active Substance: BISOPROLOL FUMARATE
     Indication: HYPERTENSION
     Dosage: 1 TAB, DAILY
     Route: 048
  7. DIZANTIN [Concomitant]
     Indication: HYPERTENSION
     Dosage: 1 TAB, DAILY
     Route: 048
  8. DOCETAXEL. [Concomitant]
     Active Substance: DOCETAXEL
     Dosage: 90 MG ONCE EVERY 3 WEEKS
     Route: 042
     Dates: start: 20190819
  9. EMPIKALOW [Concomitant]
     Indication: END STAGE RENAL DISEASE
     Dosage: 1 TAB, DAILY
     Route: 048
  10. ALLOPURINOL. [Concomitant]
     Active Substance: ALLOPURINOL
     Indication: GOUT
     Dosage: 1.5 TAB QD
     Route: 048
  11. HERZUMA [Suspect]
     Active Substance: TRASTUZUMAB-PKRB
     Indication: HER-2 POSITIVE BREAST CANCER
     Dosage: 472 MG, 3 WEEK(S)
     Route: 042
     Dates: start: 20190729, end: 20190819
  12. RENVELA [Concomitant]
     Active Substance: SEVELAMER CARBONATE
     Indication: END STAGE RENAL DISEASE
     Dosage: 1 TAB BID
     Route: 048
     Dates: start: 20190911

REACTIONS (1)
  - Gastric ulcer [Recovered/Resolved]

NARRATIVE: CASE EVENT DATE: 20190819
